FAERS Safety Report 24809963 (Version 1)
Quarter: 2025Q1

REPORT INFORMATION
  Report Type: Spontaneous
  Country: US (occurrence: US)
  Receive Date: 20250106
  Receipt Date: 20250106
  Transmission Date: 20250409
  Serious: Yes (Other)
  Sender: PROCTER AND GAMBLE
  Company Number: US-PROCTER_AND_GAMBLE-GS24166650

PATIENT
  Age: 16 Year
  Sex: Female

DRUGS (6)
  1. COSMETICS [Suspect]
     Active Substance: COSMETICS
     Dosage: ONCE EVERYDAY/ MORNING
     Route: 061
  2. COSMETICS [Suspect]
     Active Substance: COSMETICS
     Dosage: ONCE EVERYDAY/ MORNING
     Route: 061
  3. COSMETICS [Suspect]
     Active Substance: COSMETICS
     Dosage: ONCE EVERYDAY/ MORNING
     Route: 061
  4. SECRET WEIGHTLESS DRY VANILLA AND ARGAN OIL [Suspect]
     Active Substance: ALUMINUM CHLOROHYDRATE
     Dosage: ONCE EVERYDAY/ MORNING
     Route: 061
  5. COSMETICS [Suspect]
     Active Substance: COSMETICS
     Dosage: ONCE EVERYDAY/ MORNING
     Route: 061
  6. SECRET WEIGHTLESS DRY NURTURING COCONUT PLUS ARGAN OIL [Suspect]
     Active Substance: ALUMINUM CHLOROHYDRATE
     Dosage: ONCE EVERYDAY/ MORNING
     Route: 061

REACTIONS (3)
  - Hypersensitivity [Unknown]
  - Urticaria [Recovering/Resolving]
  - Lip swelling [Recovering/Resolving]

NARRATIVE: CASE EVENT DATE: 20240101
